FAERS Safety Report 19352976 (Version 1)
Quarter: 2021Q2

REPORT INFORMATION
  Report Type: Spontaneous
  Country: US (occurrence: US)
  Receive Date: 20210531
  Receipt Date: 20210531
  Transmission Date: 20210717
  Serious: Yes (Other)
  Sender: FDA-Public Use
  Company Number: US-PFIZER INC-2021564333

PATIENT
  Age: 62 Year
  Sex: Male
  Weight: 77.1 kg

DRUGS (2)
  1. INLYTA [Suspect]
     Active Substance: AXITINIB
     Indication: RENAL CANCER
     Dosage: 5 MG, 2X/DAY
     Dates: start: 20200325
  2. FAMOTIDINE. [Concomitant]
     Active Substance: FAMOTIDINE
     Indication: ABDOMINAL DISCOMFORT
     Dosage: UNK

REACTIONS (9)
  - Pulmonary thrombosis [Unknown]
  - Fatigue [Unknown]
  - Rhinorrhoea [Unknown]
  - Constipation [Unknown]
  - Dysphonia [Unknown]
  - Heart rate increased [Unknown]
  - Blood pressure increased [Unknown]
  - Decreased appetite [Unknown]
  - Cardiac disorder [Unknown]
